FAERS Safety Report 4491937-6 (Version None)
Quarter: 2004Q4

REPORT INFORMATION
  Report Type: 
  Country: None (occurrence: None)
  Receive Date: 20041029
  Receipt Date: 20041029
  Transmission Date: 20050328
  Serious: Yes (Death)
  Sender: FDA-Public Use
  Company Number: None

PATIENT
  Age: 4 Year
  Sex: Female
  Weight: 17.8 kg

DRUGS (2)
  1. MERCAPTOPURINE [Suspect]
     Indication: ACUTE LYMPHOCYTIC LEUKAEMIA
     Dates: start: 20041021, end: 20041026
  2. VINCRISTINE [Suspect]
     Dates: start: 20041021, end: 20041026

REACTIONS (16)
  - ACTIVATED PARTIAL THROMBOPLASTIN TIME PROLONGED [None]
  - ANTI-HBS ANTIBODY POSITIVE [None]
  - BLOOD CREATINE PHOSPHOKINASE INCREASED [None]
  - BLOOD FIBRINOGEN DECREASED [None]
  - COAGULATION TIME PROLONGED [None]
  - DRUG TOXICITY [None]
  - HAEMOGLOBIN ABNORMAL [None]
  - HAEMOGLOBIN URINE PRESENT [None]
  - HAEMOLYSIS [None]
  - HEPATIC FAILURE [None]
  - INTERNATIONAL NORMALISED RATIO ABNORMAL [None]
  - MYOGLOBIN URINE PRESENT [None]
  - NEUTROPHIL PERCENTAGE DECREASED [None]
  - PLATELET COUNT INCREASED [None]
  - SEPSIS [None]
  - WHITE BLOOD CELL COUNT INCREASED [None]
